FAERS Safety Report 19463104 (Version 1)
Quarter: 2021Q2

REPORT INFORMATION
  Report Type: Spontaneous
  Country: FR (occurrence: FR)
  Receive Date: 20210625
  Receipt Date: 20210625
  Transmission Date: 20210717
  Serious: Yes (Other)
  Sender: FDA-Public Use
  Company Number: FR-ASTRAZENECA-2021A412739

PATIENT
  Sex: Female

DRUGS (2)
  1. TAGRISSO [Suspect]
     Active Substance: OSIMERTINIB
     Indication: NON-SMALL CELL LUNG CANCER
     Route: 048
  2. IMFINZI [Suspect]
     Active Substance: DURVALUMAB
     Indication: ILL-DEFINED DISORDER
     Route: 042

REACTIONS (4)
  - Drug-induced liver injury [Recovering/Resolving]
  - Aspartate aminotransferase increased [Unknown]
  - Malignant neoplasm progression [Unknown]
  - Alanine aminotransferase increased [Unknown]
